FAERS Safety Report 17875206 (Version 1)
Quarter: 2020Q2

REPORT INFORMATION
  Report Type: Spontaneous
  Country: SE (occurrence: SE)
  Receive Date: 20200609
  Receipt Date: 20200609
  Transmission Date: 20200714
  Serious: Yes (Other)
  Sender: FDA-Public Use
  Company Number: SE-SUN PHARMACEUTICAL INDUSTRIES LTD-2020R1-249472

PATIENT
  Age: 54 Year
  Sex: Female

DRUGS (1)
  1. TRAMADOL. [Suspect]
     Active Substance: TRAMADOL
     Indication: PRODUCT USED FOR UNKNOWN INDICATION
     Dosage: UNK
     Route: 065

REACTIONS (7)
  - Formication [Recovering/Resolving]
  - Photophobia [Recovering/Resolving]
  - Withdrawal syndrome [Recovering/Resolving]
  - Fatigue [Recovering/Resolving]
  - Poor quality sleep [Recovering/Resolving]
  - Influenza [Recovering/Resolving]
  - Hyperacusis [Recovering/Resolving]
